FAERS Safety Report 5918699-7 (Version None)
Quarter: 2008Q4

REPORT INFORMATION
  Report Type: 
  Country: None (occurrence: None)
  Receive Date: 20081015
  Receipt Date: 20080610
  Transmission Date: 20090506
  Serious: No
  Sender: FDA-Public Use
  Company Number: US-ASTRAZENECA-2008UW11773

PATIENT
  Age: 18 Month
  Sex: Male

DRUGS (2)
  1. SYMBICORT [Suspect]
     Indication: ASTHMA
     Dosage: 160/4.5 UG TWO PUFFS TWICE A DAY WITH AN AERO CHAMBER
     Route: 055
     Dates: start: 20071201
  2. VENTOLIN HFA [Suspect]
     Indication: ASTHMA

REACTIONS (2)
  - ERYTHEMA [None]
  - IMPETIGO [None]
